FAERS Safety Report 5046023-3 (Version None)
Quarter: 2006Q3

REPORT INFORMATION
  Report Type: 
  Country: None (occurrence: None)
  Receive Date: 20060710
  Receipt Date: 20060616
  Transmission Date: 20061208
  Serious: Yes (Death)
  Sender: FDA-Public Use
  Company Number: PHEH2006US07899

PATIENT
  Age: 50 Year
  Sex: Male

DRUGS (2)
  1. ZOMETA [Suspect]
     Indication: METASTASES TO BONE
  2. CAMPTOSAR [Concomitant]
     Dosage: 600MG Q6WK

REACTIONS (4)
  - MALIGNANT NEOPLASM PROGRESSION [None]
  - PAIN [None]
  - SWELLING [None]
  - TOOTH EXTRACTION [None]
